FAERS Safety Report 6367885-3 (Version None)
Quarter: 2009Q3

REPORT INFORMATION
  Report Type: 
  Country: None (occurrence: None)
  Receive Date: 20090922
  Receipt Date: 20090911
  Transmission Date: 20100115
  Serious: Yes (Hospitalization)
  Sender: FDA-Public Use
  Company Number: US-BIOGENIDEC-2009BI029256

PATIENT
  Age: 32 Year
  Sex: Female

DRUGS (1)
  1. AVONEX [Suspect]
     Indication: MULTIPLE SCLEROSIS
     Route: 030
     Dates: start: 20070623

REACTIONS (4)
  - BRAIN NEOPLASM [None]
  - MENTAL STATUS CHANGES POSTOPERATIVE [None]
  - POSTOPERATIVE WOUND INFECTION [None]
  - PROCEDURAL HEADACHE [None]
